FAERS Safety Report 17609265 (Version 1)
Quarter: 2020Q2

REPORT INFORMATION
  Report Type: Spontaneous
  Country: SE (occurrence: SE)
  Receive Date: 20200401
  Receipt Date: 20200401
  Transmission Date: 20200713
  Serious: Yes (Death)
  Sender: FDA-Public Use
  Company Number: SE-TEVA-2020-SE-1214105

PATIENT
  Age: 39 Year
  Sex: Female

DRUGS (6)
  1. PROPAVAN [Concomitant]
     Active Substance: PROPIOMAZINE
     Dosage: ^TO THE NIGHT^
  2. PALIPERIDONE. [Suspect]
     Active Substance: PALIPERIDONE
     Dosage: 150 MILLIGRAM
     Dates: start: 201305
  3. LEVAXIN [Concomitant]
     Active Substance: LEVOTHYROXINE SODIUM
     Dates: start: 2013
  4. ARIPIPRAZOL [Suspect]
     Active Substance: ARIPIPRAZOLE
     Indication: PSYCHOTIC DISORDER
     Dosage: 10 MILLIGRAM DAILY;
     Dates: start: 201305
  5. PALIPERIDONE. [Suspect]
     Active Substance: PALIPERIDONE
     Indication: PSYCHOTIC DISORDER
     Dosage: ^100 MG / EVERY 4 WEEKS^
     Dates: start: 201109, end: 201305
  6. THERALEN [Concomitant]
     Active Substance: TRIMEPRAZINE
     Dosage: ^FOR CERTAIN PERIODS^.?UNKNOWN THERAPY / DOSING REGIMEN.

REACTIONS (1)
  - Cardiomyopathy [Fatal]

NARRATIVE: CASE EVENT DATE: 2019
